FAERS Safety Report 17011627 (Version 4)
Quarter: 2019Q4

REPORT INFORMATION
  Report Type: Spontaneous
  Country: DE (occurrence: DE)
  Receive Date: 20191108
  Receipt Date: 20191231
  Transmission Date: 20200122
  Serious: Yes (Hospitalization, Other)
  Sender: FDA-Public Use
  Company Number: DE-AMGEN-DEUNI2019182764

PATIENT
  Age: 66 Year
  Sex: Male
  Weight: 85 kg

DRUGS (128)
  1. NEULASTA [Suspect]
     Active Substance: PEGFILGRASTIM
     Indication: LEUKOPENIA
     Dosage: 6 MILLIGRAM
     Route: 058
     Dates: start: 20180514, end: 20180514
  2. NEULASTA [Suspect]
     Active Substance: PEGFILGRASTIM
     Dosage: 6 MILLIGRAM
     Route: 058
     Dates: start: 20180706, end: 20180706
  3. CYCLOPHOSPHAMIDE. [Suspect]
     Active Substance: CYCLOPHOSPHAMIDE
     Indication: DIFFUSE LARGE B-CELL LYMPHOMA
     Dosage: 1480 MG, (INFUSION RATE 4.2 ML/MIN FROM 08:00 TO 10:00)
     Route: 042
     Dates: start: 20180613, end: 20180613
  4. RITUXIMAB. [Suspect]
     Active Substance: RITUXIMAB
     Dosage: 740 MILLIGRAM(INFUSION RATE 4.2 ML/MIN FROM 07:30 TO 09:30)
     Route: 041
     Dates: start: 20180612, end: 20180612
  5. VINCRISTINE [Suspect]
     Active Substance: VINCRISTINE
     Dosage: 2 MILLIGRAMINFUSION RATE 2 ML/MIN FROM 07:30 TO 07:35)
     Route: 041
     Dates: start: 20180313, end: 20180313
  6. VINCRISTINE [Suspect]
     Active Substance: VINCRISTINE
     Dosage: 2 MILLIGRAM, (INFUSION RATE 2 ML/MIN FROM 07:55 TO 08:00)
     Route: 041
     Dates: start: 20180523, end: 20180523
  7. VINCRISTINE [Suspect]
     Active Substance: VINCRISTINE
     Dosage: 2 MILLIGRAM,(INFUSION RATE 2 ML/MIN FROM 07:30 TO 07:35)
     Route: 041
     Dates: start: 20180503, end: 20180503
  8. DOXORUBICIN [DOXORUBICIN HYDROCHLORIDE] [Suspect]
     Active Substance: DOXORUBICIN HYDROCHLORIDE
     Indication: DIFFUSE LARGE B-CELL LYMPHOMA
     Dosage: 99 MILLIGRAM  (INFUSION RATE 8.3 ML/MIN FROM 10:35 TO 11:05)
     Route: 041
     Dates: start: 20180221, end: 20180404
  9. RANITIDIN [Concomitant]
     Active Substance: RANITIDINE HYDROCHLORIDE
     Indication: PROPHYLAXIS
     Dosage: UNK
     Route: 042
     Dates: start: 20180219, end: 20180413
  10. RANITIDIN [Concomitant]
     Active Substance: RANITIDINE HYDROCHLORIDE
     Dosage: UNK
     Route: 042
     Dates: start: 20180312, end: 20180312
  11. PARACETAMOL [Concomitant]
     Active Substance: ACETAMINOPHEN
     Dosage: 1 GRAM
     Route: 048
     Dates: start: 20180502, end: 20180502
  12. PARACETAMOL [Concomitant]
     Active Substance: ACETAMINOPHEN
     Dosage: 1 GRAM
     Route: 048
     Dates: start: 20180703, end: 20180703
  13. PARACETAMOL [Concomitant]
     Active Substance: ACETAMINOPHEN
     Dosage: 1 GRAM
     Route: 048
     Dates: start: 20180312, end: 20180312
  14. PARACETAMOL [Concomitant]
     Active Substance: ACETAMINOPHEN
     Dosage: 1 GRAM
     Route: 048
     Dates: start: 20180522, end: 20180522
  15. PREDNISOLUT [PREDNISOLONE SODIUM SUCCINATE] [Concomitant]
     Indication: PROPHYLAXIS
     Dosage: UNK
     Route: 048
     Dates: start: 20180213, end: 20180218
  16. PREDNISOLUT [PREDNISOLONE SODIUM SUCCINATE] [Concomitant]
     Dosage: 100 MILLIGRAM
     Route: 048
     Dates: start: 20180219, end: 20180403
  17. PREDNISOLUT [PREDNISOLONE SODIUM SUCCINATE] [Concomitant]
     Dosage: 100 MILLIGRAM
     Route: 042
     Dates: start: 20180403, end: 20180403
  18. MESNEX [Concomitant]
     Active Substance: MESNA
     Dosage: 1200 MILLIGRAM
     Route: 042
     Dates: start: 20180503, end: 20180503
  19. TAVEGIL [CLEMASTINE] [Concomitant]
     Active Substance: CLEMASTINE
     Dosage: 3 MILLIGRAM
     Route: 042
     Dates: start: 20180312, end: 20180312
  20. ALLOPURINOL. [Concomitant]
     Active Substance: ALLOPURINOL
     Indication: PROPHYLAXIS
     Dosage: 300 MILLIGRAM
     Route: 048
     Dates: start: 20180213, end: 20180311
  21. ALLOPURINOL. [Concomitant]
     Active Substance: ALLOPURINOL
     Dosage: 300 MILLIGRAM
     Route: 048
     Dates: start: 20180313
  22. KEVATRIL [Concomitant]
     Active Substance: GRANISETRON HYDROCHLORIDE
     Dosage: 1 MILLIGRAM
     Route: 042
     Dates: start: 20180524, end: 20180524
  23. KEVATRIL [Concomitant]
     Active Substance: GRANISETRON HYDROCHLORIDE
     Dosage: 3 MILLIGRAM
     Route: 042
     Dates: start: 20180503, end: 20180503
  24. KEVATRIL [Concomitant]
     Active Substance: GRANISETRON HYDROCHLORIDE
     Dosage: 1 MILLIGRAM
     Route: 042
     Dates: start: 20180614, end: 20180614
  25. RITUXIMAB. [Suspect]
     Active Substance: RITUXIMAB
     Dosage: 740 MILLIGRAM
     Route: 041
     Dates: start: 20180807, end: 20180807
  26. VINCRISTINE [Suspect]
     Active Substance: VINCRISTINE
     Indication: DIFFUSE LARGE B-CELL LYMPHOMA
     Dosage: 2 MILLIGRAM
     Route: 041
     Dates: start: 20180213, end: 20180404
  27. PREDNISONE. [Suspect]
     Active Substance: PREDNISONE
     Dosage: 400 MILLIGRAM
     Route: 048
     Dates: start: 20180613, end: 20180616
  28. PREDNISONE. [Suspect]
     Active Substance: PREDNISONE
     Dosage: 500 MILLIGRAM
     Route: 048
     Dates: start: 20180313, end: 20180317
  29. DOXORUBICIN [DOXORUBICIN HYDROCHLORIDE] [Suspect]
     Active Substance: DOXORUBICIN HYDROCHLORIDE
     Dosage: 99 MILLIGRAM(INFUSION RATE 8.3 ML/MIN FROM 10:00 TO 10:30)
     Route: 041
     Dates: start: 20180704, end: 20180704
  30. DOXORUBICIN [DOXORUBICIN HYDROCHLORIDE] [Suspect]
     Active Substance: DOXORUBICIN HYDROCHLORIDE
     Dosage: 99 MILLIGRAM (INFUSION RATE 8.3 ML/MIN FROM 09:35 TO 10:05)
     Route: 041
     Dates: start: 20180503, end: 20180503
  31. RANITIDIN [Concomitant]
     Active Substance: RANITIDINE HYDROCHLORIDE
     Dosage: UNK
     Route: 042
     Dates: start: 20180703, end: 20180703
  32. RANITIDIN [Concomitant]
     Active Substance: RANITIDINE HYDROCHLORIDE
     Dosage: UNK
     Route: 042
     Dates: start: 20180502, end: 20180502
  33. PREDNISOLUT [PREDNISOLONE SODIUM SUCCINATE] [Concomitant]
     Dosage: 100 MILLIGRAM
     Route: 042
     Dates: start: 20180612, end: 20180612
  34. AMPHO MORONAL [Concomitant]
     Active Substance: AMPHOTERICIN B
     Dosage: UNK, BID
     Route: 048
     Dates: start: 20180522, end: 20180528
  35. TAVEGIL [CLEMASTINE] [Concomitant]
     Active Substance: CLEMASTINE
     Indication: PROPHYLAXIS
     Dosage: 3 MG, UNK
     Route: 042
     Dates: start: 20180612, end: 20180612
  36. TAVEGIL [CLEMASTINE] [Concomitant]
     Active Substance: CLEMASTINE
     Dosage: 3 MILLIGRAM
     Route: 042
     Dates: start: 20180219, end: 20180219
  37. TAVEGIL [CLEMASTINE] [Concomitant]
     Active Substance: CLEMASTINE
     Dosage: 3 MILLIGRAM
     Route: 042
     Dates: start: 20180522, end: 20180522
  38. KEVATRIL [Concomitant]
     Active Substance: GRANISETRON HYDROCHLORIDE
     Dosage: 1 MILLIGRAM
     Route: 048
     Dates: start: 20180222, end: 20180405
  39. SALBUTAMOL [Concomitant]
     Active Substance: ALBUTEROL
     Indication: ASTHMA
     Dosage: UNK, AS NECESSARY
     Route: 048
     Dates: start: 201711
  40. NEULASTA [Suspect]
     Active Substance: PEGFILGRASTIM
     Dosage: 6 MILLIGRAM
     Route: 058
     Dates: start: 20180810, end: 20180810
  41. CYCLOPHOSPHAMIDE. [Suspect]
     Active Substance: CYCLOPHOSPHAMIDE
     Dosage: 1480 MILLIGRAM,(INFUSION RATE 4.17 ML/MIN FROM 07:35 TO 09:35)
     Route: 042
     Dates: start: 20180503, end: 20180503
  42. RITUXIMAB. [Suspect]
     Active Substance: RITUXIMAB
     Dosage: 740 MILLIGRAM, QD
     Route: 041
     Dates: start: 20180703, end: 20180703
  43. VINCRISTINE [Suspect]
     Active Substance: VINCRISTINE
     Dosage: 2 MILLIGRAM,(INFUSION RATE 2 ML/MIN FROM 07:55 TO 08:00)
     Route: 041
     Dates: start: 20180613, end: 20180613
  44. PREDNISONE. [Suspect]
     Active Substance: PREDNISONE
     Indication: DIFFUSE LARGE B-CELL LYMPHOMA
     Dosage: 500 MILLIGRAM
     Route: 048
     Dates: start: 20180221, end: 20180317
  45. DOXORUBICIN [DOXORUBICIN HYDROCHLORIDE] [Suspect]
     Active Substance: DOXORUBICIN HYDROCHLORIDE
     Dosage: 99 MILLIGRAM(INFUSION RATE 8.3 ML/MIN FROM 10:00 TO 10:30)
     Route: 041
     Dates: start: 20180613, end: 20180613
  46. RANITIDIN [Concomitant]
     Active Substance: RANITIDINE HYDROCHLORIDE
     Dosage: UNK
     Route: 042
     Dates: start: 20180403, end: 20180403
  47. PARACETAMOL [Concomitant]
     Active Substance: ACETAMINOPHEN
     Dosage: 1 GRAM
     Route: 048
     Dates: start: 20180220, end: 20180220
  48. AMPHO MORONAL [Concomitant]
     Active Substance: AMPHOTERICIN B
     Dosage: UNK, BID
     Route: 042
     Dates: start: 20180403, end: 20180409
  49. MESNEX [Concomitant]
     Active Substance: MESNA
     Dosage: 1200 MILLIGRAM
     Route: 042
     Dates: start: 20180808, end: 20180808
  50. TAVEGIL [CLEMASTINE] [Concomitant]
     Active Substance: CLEMASTINE
     Dosage: UNK
     Route: 042
     Dates: start: 20180703, end: 20180703
  51. KEVATRIL [Concomitant]
     Active Substance: GRANISETRON HYDROCHLORIDE
     Indication: PROPHYLAXIS
     Dosage: UNK
     Route: 048
     Dates: start: 20180213, end: 20180213
  52. KEVATRIL [Concomitant]
     Active Substance: GRANISETRON HYDROCHLORIDE
     Dosage: 3 MILLIGRAM
     Route: 042
     Dates: start: 20180221, end: 20180404
  53. KEVATRIL [Concomitant]
     Active Substance: GRANISETRON HYDROCHLORIDE
     Dosage: 1 MILLIGRAM
     Route: 042
     Dates: start: 20180405, end: 20180405
  54. KEVATRIL [Concomitant]
     Active Substance: GRANISETRON HYDROCHLORIDE
     Dosage: 3 MILLIGRAM
     Route: 042
     Dates: start: 20180704, end: 20180704
  55. KEVATRIL [Concomitant]
     Active Substance: GRANISETRON HYDROCHLORIDE
     Dosage: 3 MILLIGRAM
     Route: 042
     Dates: start: 20180808, end: 20180808
  56. KEVATRIL [Concomitant]
     Active Substance: GRANISETRON HYDROCHLORIDE
     Dosage: 3 MILLIGRAM
     Route: 042
     Dates: start: 20180404, end: 20180404
  57. NEULASTA [Suspect]
     Active Substance: PEGFILGRASTIM
     Dosage: 6 MILLIGRAM
     Route: 058
     Dates: start: 20180505, end: 20180505
  58. CYCLOPHOSPHAMIDE. [Suspect]
     Active Substance: CYCLOPHOSPHAMIDE
     Dosage: 1480 MILLIGRAM
     Route: 041
     Dates: start: 20180808, end: 20180808
  59. CYCLOPHOSPHAMIDE. [Suspect]
     Active Substance: CYCLOPHOSPHAMIDE
     Dosage: 1480 MILLIGRAM,(INFUSION RATE 4.17 ML/MIN FROM 07:35 TO 09:35
     Route: 042
     Dates: start: 20180313, end: 20180313
  60. RITUXIMAB. [Suspect]
     Active Substance: RITUXIMAB
     Indication: DIFFUSE LARGE B-CELL LYMPHOMA
     Dosage: 740 MILLIGRAM,(INFUSION RATE 1.7 ML/MIN FROM 07:30 TO 11:30)
     Route: 041
     Dates: start: 20180219, end: 20180219
  61. RITUXIMAB. [Suspect]
     Active Substance: RITUXIMAB
     Dosage: 600 MILLIGRAM,(INFUSION RATE 2.78 ML/MIN FROM 07:30 TO 10:30)
     Route: 041
     Dates: start: 20180312, end: 20180312
  62. RITUXIMAB. [Suspect]
     Active Substance: RITUXIMAB
     Dosage: 740 MILLIGRAM,(INFUSION RATE 4.17 ML/MIN FROM 07:30 TO 09:30)
     Route: 041
     Dates: start: 20180502, end: 20180502
  63. PREDNISONE. [Suspect]
     Active Substance: PREDNISONE
     Dosage: 400 MILLIGRAM
     Route: 048
     Dates: start: 20180404, end: 20180407
  64. PREDNISONE. [Suspect]
     Active Substance: PREDNISONE
     Dosage: 400 MILLIGRAM
     Route: 048
     Dates: start: 20180523, end: 20180526
  65. PREDNISONE. [Suspect]
     Active Substance: PREDNISONE
     Dosage: 400 MILLIGRAM
     Route: 048
     Dates: start: 20180704, end: 20180707
  66. DOXORUBICIN [DOXORUBICIN HYDROCHLORIDE] [Suspect]
     Active Substance: DOXORUBICIN HYDROCHLORIDE
     Dosage: 99 MILLIGRAM (INFUSION RATE 8.4 ML/MIN FROM 10:00 TO 10:30)
     Route: 041
     Dates: start: 20180523, end: 20180523
  67. RANITIDIN [Concomitant]
     Active Substance: RANITIDINE HYDROCHLORIDE
     Dosage: 2 MILLIGRAM
     Route: 042
     Dates: start: 20180807, end: 20180807
  68. PARACETAMOL [Concomitant]
     Active Substance: ACETAMINOPHEN
     Dosage: 1 GRAM
     Route: 042
     Dates: start: 20180807, end: 20180807
  69. PREDNISOLUT [PREDNISOLONE SODIUM SUCCINATE] [Concomitant]
     Dosage: 100 MILLIGRAM
     Route: 042
     Dates: start: 20180522, end: 20180522
  70. AMPHO MORONAL [Concomitant]
     Active Substance: AMPHOTERICIN B
     Dosage: UNK, BID
     Route: 048
     Dates: start: 20180502, end: 20180509
  71. AMPHO MORONAL [Concomitant]
     Active Substance: AMPHOTERICIN B
     Dosage: UNK, BID
     Route: 048
     Dates: start: 20180312, end: 20180318
  72. MESNEX [Concomitant]
     Active Substance: MESNA
     Dosage: 1200 MILLIGRAM
     Route: 042
     Dates: start: 20180613, end: 20180613
  73. TAVEGIL [CLEMASTINE] [Concomitant]
     Active Substance: CLEMASTINE
     Dosage: 3 MILLIGRAM
     Route: 042
     Dates: start: 20180403, end: 20180403
  74. KEVATRIL [Concomitant]
     Active Substance: GRANISETRON HYDROCHLORIDE
     Dosage: 3 MILLIGRAM
     Route: 042
     Dates: start: 20180313, end: 20180313
  75. VINCRISTINE [Suspect]
     Active Substance: VINCRISTINE
     Dosage: 2 MILLIGRAM,INFUSION RATE 2 ML/MIN FROM 07:55 TO 08:00)
     Route: 041
     Dates: start: 20180704, end: 20180704
  76. DOXORUBICIN [DOXORUBICIN HYDROCHLORIDE] [Suspect]
     Active Substance: DOXORUBICIN HYDROCHLORIDE
     Dosage: 99 MILLIGRAM
     Route: 041
     Dates: start: 20180808, end: 20180808
  77. PANTOZOL [Concomitant]
     Active Substance: PANTOPRAZOLE SODIUM
     Indication: PROPHYLAXIS
     Dosage: 40 MILLIGRAM
     Route: 048
     Dates: start: 20180219
  78. RANITIDIN [Concomitant]
     Active Substance: RANITIDINE HYDROCHLORIDE
     Dosage: UNK
     Route: 042
     Dates: start: 20180522, end: 20180522
  79. PREDNISOLUT [PREDNISOLONE SODIUM SUCCINATE] [Concomitant]
     Dosage: 100 MILLIGRAM
     Route: 042
     Dates: start: 20180502, end: 20180502
  80. PREDNISOLUT [PREDNISOLONE SODIUM SUCCINATE] [Concomitant]
     Dosage: 100 MILLIGRAM
     Route: 042
     Dates: start: 20180220, end: 20180220
  81. AMPHO MORONAL [Concomitant]
     Active Substance: AMPHOTERICIN B
     Dosage: UNK, BID
     Route: 048
     Dates: start: 20180703, end: 20180709
  82. MESNEX [Concomitant]
     Active Substance: MESNA
     Dosage: 1200 MILLIGRAM
     Route: 042
     Dates: start: 20180523, end: 20180523
  83. MESNEX [Concomitant]
     Active Substance: MESNA
     Dosage: 1200 MILLIGRAM
     Route: 042
     Dates: start: 20180404, end: 20180404
  84. MESNEX [Concomitant]
     Active Substance: MESNA
     Dosage: 1200 MILLIGRAM
     Route: 042
     Dates: start: 20180313, end: 20180313
  85. KEVATRIL [Concomitant]
     Active Substance: GRANISETRON HYDROCHLORIDE
     Dosage: 1 MILLIGRAM
     Route: 042
     Dates: start: 20180504, end: 20180504
  86. KEVATRIL [Concomitant]
     Active Substance: GRANISETRON HYDROCHLORIDE
     Dosage: 1 MILLIGRAM
     Route: 042
     Dates: start: 20180314, end: 20180314
  87. NEULASTA [Suspect]
     Active Substance: PEGFILGRASTIM
     Dosage: 6 MILLIGRAM
     Route: 058
     Dates: start: 20180525, end: 20180525
  88. CYCLOPHOSPHAMIDE. [Suspect]
     Active Substance: CYCLOPHOSPHAMIDE
     Dosage: 1480 MILLIGRAM,(INFUSION RATE 8.1 ML/MIN FROM 07:35 TO 10:35)
     Route: 041
     Dates: start: 20180221, end: 20180221
  89. CYCLOPHOSPHAMIDE. [Suspect]
     Active Substance: CYCLOPHOSPHAMIDE
     Dosage: 1480 MILLIGRAM, (INFUSION RATE 4.2 ML/MIN FROM 08:00 TO 10:00)
     Route: 041
     Dates: start: 20180704, end: 20180704
  90. RITUXIMAB. [Suspect]
     Active Substance: RITUXIMAB
     Dosage: 740 MILLIGRAM,(INFUSION RATE 4.2 ML/MIN FROM 08:00 TO 10:00)
     Route: 041
     Dates: start: 20180522, end: 20180522
  91. VINCRISTINE [Suspect]
     Active Substance: VINCRISTINE
     Dosage: 2 MILLIGRAM,INFUSION RATE 2 ML/MIN FROM 07:30 TO 07:35)
     Route: 041
     Dates: start: 20180221, end: 20180221
  92. PREDNISONE. [Suspect]
     Active Substance: PREDNISONE
     Dosage: 400 MILLIGRAM
     Route: 048
     Dates: start: 20180503, end: 20180506
  93. BISOPROLOL [Concomitant]
     Active Substance: BISOPROLOL
     Dosage: 5 MILLIGRAM
     Route: 048
     Dates: start: 20180720
  94. RANITIDIN [Concomitant]
     Active Substance: RANITIDINE HYDROCHLORIDE
     Dosage: UNK
     Route: 042
     Dates: start: 20180612, end: 20180612
  95. RANITIDIN [Concomitant]
     Active Substance: RANITIDINE HYDROCHLORIDE
     Dosage: UNK
     Route: 042
     Dates: start: 20180220, end: 20180220
  96. AMPHO MORONAL [Concomitant]
     Active Substance: AMPHOTERICIN B
     Dosage: UNK, BID
     Route: 048
     Dates: start: 20180612, end: 20180618
  97. TAVEGIL [CLEMASTINE] [Concomitant]
     Active Substance: CLEMASTINE
     Dosage: 3 MILLIGRAM
     Route: 042
     Dates: start: 20180502, end: 20180502
  98. KEVATRIL [Concomitant]
     Active Substance: GRANISETRON HYDROCHLORIDE
     Dosage: 3 MILLIGRAM
     Route: 042
     Dates: start: 20180523, end: 20180523
  99. KEVATRIL [Concomitant]
     Active Substance: GRANISETRON HYDROCHLORIDE
     Dosage: 3 MILLIGRAM
     Route: 042
     Dates: start: 20180613, end: 20180613
  100. KEVATRIL [Concomitant]
     Active Substance: GRANISETRON HYDROCHLORIDE
     Dosage: 1 MILLIGRAM
     Route: 042
     Dates: start: 20180705, end: 20180705
  101. NEULASTA [Suspect]
     Active Substance: PEGFILGRASTIM
     Dosage: 6 MILLIGRAM
     Route: 058
     Dates: start: 20180615, end: 20180615
  102. CYCLOPHOSPHAMIDE. [Suspect]
     Active Substance: CYCLOPHOSPHAMIDE
     Dosage: 1480 MILLIGRAM,(INFUSION RATE 4.2 ML/MIN FROM 08:00 TO 10:00)
     Route: 042
     Dates: start: 20180523, end: 20180523
  103. RITUXIMAB. [Suspect]
     Active Substance: RITUXIMAB
     Dosage: 740 MILLIGRAM (INFUSION RATE 8.3 ML/MIN FROM 07:30 TO 09:30)
     Route: 041
     Dates: start: 20180403, end: 20180403
  104. VINCRISTINE [Suspect]
     Active Substance: VINCRISTINE
     Dosage: 2 MILLIGRAM
     Route: 041
     Dates: start: 20180808, end: 20180808
  105. SILAPO [Concomitant]
     Indication: PRODUCT USED FOR UNKNOWN INDICATION
     Dosage: 20.000 IE, QWK
     Route: 058
     Dates: start: 20180503
  106. BISOPROLOL [Concomitant]
     Active Substance: BISOPROLOL
     Indication: HYPERTENSION
     Dosage: 2.5 MILLIGRAM
     Route: 048
     Dates: start: 20170830, end: 20180719
  107. PARACETAMOL [Concomitant]
     Active Substance: ACETAMINOPHEN
     Indication: PROPHYLAXIS
     Dosage: 1 GRAM
     Route: 048
     Dates: start: 20180219, end: 20180403
  108. PARACETAMOL [Concomitant]
     Active Substance: ACETAMINOPHEN
     Dosage: 1 GRAM
     Route: 048
     Dates: start: 20180612, end: 20180612
  109. PREDNISOLUT [PREDNISOLONE SODIUM SUCCINATE] [Concomitant]
     Dosage: 100 MILLIGRAM
     Route: 042
     Dates: start: 20180312, end: 20180312
  110. AMPHO MORONAL [Concomitant]
     Active Substance: AMPHOTERICIN B
     Indication: PROPHYLAXIS
     Dosage: UNK
     Route: 048
     Dates: start: 20180213, end: 20180409
  111. MESNEX [Concomitant]
     Active Substance: MESNA
     Indication: PROPHYLAXIS
     Dosage: 1200 MILLIGRAM
     Route: 042
     Dates: start: 20180221, end: 20180404
  112. TAVEGIL [CLEMASTINE] [Concomitant]
     Active Substance: CLEMASTINE
     Dosage: 3 MILLIGRAM
     Route: 042
     Dates: start: 20180220, end: 20180220
  113. KEVATRIL [Concomitant]
     Active Substance: GRANISETRON HYDROCHLORIDE
     Dosage: 1 MILLIGRAM
     Route: 042
     Dates: start: 20180808, end: 20180808
  114. NEULASTA [Suspect]
     Active Substance: PEGFILGRASTIM
     Indication: PROPHYLAXIS
     Dosage: 6 MILLIGRAM
     Route: 058
     Dates: start: 20180327, end: 20180327
  115. CYCLOPHOSPHAMIDE. [Suspect]
     Active Substance: CYCLOPHOSPHAMIDE
     Dosage: 1480 MILLIGRAM,(INFUSION RATE 8.3 ML/MIN FROM 07:35 TO 09:35)
     Route: 042
     Dates: start: 20180404, end: 20180404
  116. VINCRISTINE [Suspect]
     Active Substance: VINCRISTINE
     Dosage: 2 MILLIGRAM(INFUSION RATE 2 ML/MIN FROM 07:30 TO 07:35)
     Route: 041
     Dates: start: 20180404, end: 20180404
  117. PREDNISONE. [Suspect]
     Active Substance: PREDNISONE
     Dosage: 400 MILLIGRAM
     Route: 048
     Dates: start: 20180808, end: 20180811
  118. DOXORUBICIN [DOXORUBICIN HYDROCHLORIDE] [Suspect]
     Active Substance: DOXORUBICIN HYDROCHLORIDE
     Dosage: 99 MILLIGRAM, (INFUSION RATE 8.3 ML/MIN FROM 09:35 TO 10:05)
     Route: 041
     Dates: start: 20180313, end: 20180313
  119. DOXORUBICIN [DOXORUBICIN HYDROCHLORIDE] [Suspect]
     Active Substance: DOXORUBICIN HYDROCHLORIDE
     Dosage: 99 MILLIGRAM(INFUSION RATE 8.3 ML/MIN FROM 09:35 TO 10:05)
     Route: 041
     Dates: start: 20180404, end: 20180404
  120. ACIC [ACICLOVIR] [Concomitant]
     Active Substance: ACYCLOVIR
     Indication: PROPHYLAXIS
     Dosage: 800 MILLIGRAM
     Route: 048
     Dates: start: 20180219
  121. COTRIM [Concomitant]
     Active Substance: SULFAMETHOXAZOLE\TRIMETHOPRIM
     Indication: PROPHYLAXIS
     Dosage: UNK (3 DAYS WEEKLY)
     Route: 048
     Dates: start: 20180219
  122. PARACETAMOL [Concomitant]
     Active Substance: ACETAMINOPHEN
     Dosage: 1 GRAM
     Route: 048
     Dates: start: 20180403, end: 20180403
  123. PREDNISOLUT [PREDNISOLONE SODIUM SUCCINATE] [Concomitant]
     Dosage: 100 MILLIGRAM
     Route: 042
     Dates: start: 20180807, end: 20180807
  124. PREDNISOLUT [PREDNISOLONE SODIUM SUCCINATE] [Concomitant]
     Dosage: 100 MILLIGRAM
     Route: 042
     Dates: start: 20180703, end: 20180703
  125. AMPHO MORONAL [Concomitant]
     Active Substance: AMPHOTERICIN B
     Dosage: UNK, BID
     Route: 048
     Dates: start: 20180219, end: 20180226
  126. AMPHO MORONAL [Concomitant]
     Active Substance: AMPHOTERICIN B
     Dosage: UNK, BID
     Route: 048
     Dates: start: 20180807, end: 20180813
  127. MESNEX [Concomitant]
     Active Substance: MESNA
     Dosage: 1200 MILLIGRAM
     Route: 042
     Dates: start: 20180704, end: 20180704
  128. TAVEGIL [CLEMASTINE] [Concomitant]
     Active Substance: CLEMASTINE
     Dosage: 2 UNK
     Route: 042
     Dates: start: 20180807, end: 20180807

REACTIONS (16)
  - Pyrexia [Unknown]
  - Chest pain [Unknown]
  - Anaemia [Not Recovered/Not Resolved]
  - Fibrin D dimer increased [Unknown]
  - Neutropenia [Not Recovered/Not Resolved]
  - Neutropenic sepsis [Recovered/Resolved]
  - Pain [Recovered/Resolved]
  - Deep vein thrombosis [Recovered/Resolved]
  - Drug therapeutic incompatibility [Recovered/Resolved]
  - Lymphoedema [Recovered/Resolved]
  - Asthma [Recovered/Resolved]
  - C-reactive protein increased [Recovered/Resolved]
  - Chills [Unknown]
  - Pulpitis dental [Recovered/Resolved]
  - Polyneuropathy [Not Recovered/Not Resolved]
  - Nausea [Recovered/Resolved]

NARRATIVE: CASE EVENT DATE: 2018
